FAERS Safety Report 21244171 (Version 1)
Quarter: 2022Q3

REPORT INFORMATION
  Report Type: Spontaneous
  Country: US (occurrence: US)
  Receive Date: 20220823
  Receipt Date: 20220823
  Transmission Date: 20221026
  Serious: No
  Sender: FDA-Public Use
  Company Number: US-009507513-2208USA006814

PATIENT
  Age: 62 Year
  Sex: Female

DRUGS (1)
  1. INTEGRILIN [Suspect]
     Active Substance: EPTIFIBATIDE
     Indication: Coronary artery occlusion
     Dosage: UNK
     Route: 022

REACTIONS (1)
  - Product use issue [Unknown]
